FAERS Safety Report 6899552-1 (Version None)
Quarter: 2010Q3

REPORT INFORMATION
  Report Type: 
  Country: None (occurrence: None)
  Receive Date: 20100803
  Receipt Date: 20100727
  Transmission Date: 20110219
  Serious: No
  Sender: FDA-Public Use
  Company Number: US-BIOGENIDEC-2010BI025974

PATIENT
  Age: 51 Year
  Sex: Female

DRUGS (1)
  1. TYSABRI [Suspect]
     Indication: MULTIPLE SCLEROSIS
     Route: 042
     Dates: start: 20090722

REACTIONS (9)
  - ARTHROPOD STING [None]
  - BALANCE DISORDER [None]
  - COUGH [None]
  - DYSPEPSIA [None]
  - HYPOAESTHESIA [None]
  - PARAESTHESIA [None]
  - STRESS [None]
  - THROAT IRRITATION [None]
  - VOMITING [None]
